FAERS Safety Report 23579779 (Version 1)
Quarter: 2024Q1

REPORT INFORMATION
  Report Type: Spontaneous
  Country: US (occurrence: US)
  Receive Date: 20240229
  Receipt Date: 20240229
  Transmission Date: 20240409
  Serious: Yes (Hospitalization)
  Sender: FDA-Public Use
  Company Number: US-MYLANLABS-2024M1018645

PATIENT
  Age: 20 Year
  Sex: Male

DRUGS (4)
  1. CABERGOLINE [Suspect]
     Active Substance: CABERGOLINE
     Indication: Pituitary tumour benign
     Dosage: UNK (LOW DOSE)
     Route: 065
  2. CABERGOLINE [Suspect]
     Active Substance: CABERGOLINE
     Dosage: 3 MILLIGRAM, BIWEEKLY (INITIALLY RECEIVED LOW DOSE AND THEN RAPIDLY TITRATED UP TO 3MG BIWEEKLY)
     Route: 065
  3. OCTREOTIDE [Suspect]
     Active Substance: OCTREOTIDE\OCTREOTIDE ACETATE
     Indication: Pituitary tumour benign
     Dosage: UNK (INITIAL DOSE)
     Route: 065
  4. OCTREOTIDE [Suspect]
     Active Substance: OCTREOTIDE\OCTREOTIDE ACETATE
     Dosage: 150 MICROGRAM, TID (TITRATED UP TO A DOSE OF 150MICROGRAM THREE TIMES DAILY)
     Route: 065

REACTIONS (2)
  - Drug ineffective [Unknown]
  - Off label use [Unknown]
